FAERS Safety Report 7641625-X (Version None)
Quarter: 2011Q3

REPORT INFORMATION
  Report Type: 
  Country: None (occurrence: None)
  Receive Date: 20110728
  Receipt Date: 20110708
  Transmission Date: 20111222
  Serious: Yes (Hospitalization)
  Sender: FDA-Public Use
  Company Number: US-GLAXOSMITHKLINE-A0748635A

PATIENT
  Age: 63 Year
  Sex: Female
  Weight: 72.3 kg

DRUGS (7)
  1. AVANDIA [Suspect]
     Indication: DIABETES MELLITUS
     Dosage: 8MG PER DAY
     Route: 048
     Dates: start: 20060823, end: 20070101
  2. METOPROLOL TARTRATE [Concomitant]
  3. VYTORIN [Concomitant]
  4. AVANDARYL [Suspect]
     Indication: DIABETES MELLITUS
     Route: 048
     Dates: start: 20060101, end: 20060822
  5. AMARYL [Concomitant]
  6. NORCO [Concomitant]
  7. DIOVAN [Concomitant]
     Dates: end: 20070201

REACTIONS (5)
  - CARDIAC FAILURE CONGESTIVE [None]
  - CORONARY ARTERY DISEASE [None]
  - ISCHAEMIC CARDIOMYOPATHY [None]
  - ACUTE CORONARY SYNDROME [None]
  - HEART INJURY [None]
